FAERS Safety Report 7057395-2 (Version None)
Quarter: 2010Q4

REPORT INFORMATION
  Report Type: 
  Country: None (occurrence: None)
  Receive Date: 20101022
  Receipt Date: 20101015
  Transmission Date: 20110411
  Serious: Yes (Hospitalization)
  Sender: FDA-Public Use
  Company Number: US-AMGEN INC.-USASP2010000441

PATIENT

DRUGS (2)
  1. ENBREL [Suspect]
     Indication: RHEUMATOID ARTHRITIS
     Dosage: 25 MG, 2 TIMES/WK
     Dates: start: 19990601
  2. ENBREL [Suspect]
     Dosage: 50 MG, QWK
     Dates: end: 20060101

REACTIONS (6)
  - ARTHRALGIA [None]
  - FOOT OPERATION [None]
  - HYPOTENSION [None]
  - MALAISE [None]
  - PAIN [None]
  - RHEUMATOID ARTHRITIS [None]
